FAERS Safety Report 4296380-0 (Version None)
Quarter: 2004Q1

REPORT INFORMATION
  Report Type: 
  Country: None (occurrence: None)
  Receive Date: 20040213
  Receipt Date: 20040213
  Transmission Date: 20041129
  Serious: Yes (Hospitalization)
  Sender: FDA-Public Use
  Company Number: None

PATIENT
  Sex: Female
  Weight: 77.1115 kg

DRUGS (5)
  1. CELEBREX [Suspect]
     Indication: ARTHROSCOPIC SURGERY
     Dosage: 200 MG PO QD [PRIOR TO ADMISSION}
     Route: 048
  2. ATENOLOL [Concomitant]
  3. AVAPRO [Concomitant]
  4. PLAVIX [Concomitant]
  5. LIPITOR [Concomitant]

REACTIONS (2)
  - DYSPNOEA [None]
  - JOINT SWELLING [None]
